FAERS Safety Report 13378947 (Version 1)
Quarter: 2017Q1

REPORT INFORMATION
  Report Type: Spontaneous
  Country: US (occurrence: US)
  Receive Date: 20170328
  Receipt Date: 20170328
  Transmission Date: 20170429
  Serious: No
  Sender: FDA-Public Use
  Company Number: US-ROCHE-GNE303032

PATIENT
  Age: 45 Year
  Sex: Female
  Weight: 138.92 kg

DRUGS (1)
  1. XOLAIR [Suspect]
     Active Substance: OMALIZUMAB
     Indication: PRODUCT USED FOR UNKNOWN INDICATION
     Dosage: 375 MG, Q2W
     Route: 065
     Dates: start: 20080521, end: 20100415

REACTIONS (2)
  - Palpitations [Unknown]
  - Chest pain [None]

NARRATIVE: CASE EVENT DATE: 20100401
